FAERS Safety Report 6755739-X (Version None)
Quarter: 2010Q2

REPORT INFORMATION
  Report Type: 
  Country: None (occurrence: None)
  Receive Date: 20100604
  Receipt Date: 20100527
  Transmission Date: 20101027
  Serious: Yes (Hospitalization)
  Sender: FDA-Public Use
  Company Number: US-KINGPHARMUSA00001-K201000667

PATIENT
  Age: 60 Year
  Sex: Female

DRUGS (2)
  1. EMBEDA [Suspect]
     Dosage: 60 MG, Q12 H
     Dates: start: 20100101
  2. CYMBALTA [Concomitant]

REACTIONS (3)
  - CONVULSION [None]
  - HEPATIC FAILURE [None]
  - RENAL FAILURE [None]
